FAERS Safety Report 6818134-0 (Version None)
Quarter: 2010Q3

REPORT INFORMATION
  Report Type: 
  Country: None (occurrence: None)
  Receive Date: 20100706
  Receipt Date: 20100622
  Transmission Date: 20110219
  Serious: Yes (Other)
  Sender: FDA-Public Use
  Company Number: JP-AMGEN-KDC421935

PATIENT
  Sex: Male

DRUGS (14)
  1. REGPARA [Suspect]
     Indication: HYPERPARATHYROIDISM SECONDARY
     Route: 048
     Dates: start: 20080305
  2. ALFACALCIDOL [Concomitant]
     Route: 048
  3. CALCIUM CARBONATE [Concomitant]
     Route: 048
  4. NORVASC [Concomitant]
     Route: 048
     Dates: end: 20080630
  5. NU-LOTAN [Concomitant]
     Route: 048
  6. MERCAZOLE [Concomitant]
     Route: 048
  7. GASCON [Concomitant]
     Route: 048
  8. GASMOTIN [Concomitant]
     Route: 048
  9. GANATON [Concomitant]
     Route: 048
  10. MUCOSTA [Concomitant]
     Route: 048
  11. ZANTAC [Concomitant]
     Route: 048
     Dates: end: 20080630
  12. PURSENNID [Concomitant]
     Route: 048
  13. DARBEPOETIN ALFA [Concomitant]
     Route: 042
     Dates: start: 20080407
  14. ZYLORIC [Concomitant]
     Route: 048
     Dates: start: 20080602

REACTIONS (2)
  - HYPERCALCAEMIA [None]
  - HYPOCALCAEMIA [None]
